FAERS Safety Report 9722987 (Version 1)
Quarter: 2013Q4

REPORT INFORMATION
  Report Type: Spontaneous
  Country: DE (occurrence: None)
  Receive Date: 20131126
  Receipt Date: 20131126
  Transmission Date: 20140711
  Serious: Yes (Death)
  Sender: FDA-Public Use
  Company Number: B0947032A

PATIENT
  Sex: 0

DRUGS (6)
  1. MELPHALAN [Suspect]
     Indication: LYMPHOMA
  2. CLOFARABINE [Suspect]
  3. FLUDARABINE PHOSPHATE [Suspect]
  4. CYCLOPHOSPHAMIDE [Suspect]
  5. MYCOPHENOLATE MOFETIL [Suspect]
  6. TACROLIMUS [Suspect]

REACTIONS (1)
  - Toxicity to various agents [None]
